FAERS Safety Report 10213883 (Version 2)
Quarter: 2014Q2

REPORT INFORMATION
  Report Type: Spontaneous
  Country: JP (occurrence: None)
  Receive Date: 20140529
  Receipt Date: 20140626
  Transmission Date: 20141212
  Serious: Yes (Hospitalization)
  Sender: FDA-Public Use
  Company Number: SP07791

PATIENT
  Age: 77 Year
  Sex: Female

DRUGS (1)
  1. MOVIPREP (SOLUTION) [Suspect]
     Indication: BOWEL PREPARATION
     Dosage: (1 LIT) , ORAL
     Route: 048
     Dates: start: 20140421, end: 20140421

REACTIONS (3)
  - Depressed level of consciousness [None]
  - Hyponatraemia [None]
  - Nausea [None]
